FAERS Safety Report 5869028-9 (Version None)
Quarter: 2008Q3

REPORT INFORMATION
  Report Type: 
  Country: None (occurrence: None)
  Receive Date: 20080903
  Receipt Date: 20080825
  Transmission Date: 20090109
  Serious: Yes (Other)
  Sender: FDA-Public Use
  Company Number: A0745708A

PATIENT
  Sex: Male
  Weight: 2.5 kg

DRUGS (2)
  1. LAMICTAL [Suspect]
     Indication: EPILEPSY
     Dosage: 1000MG PER DAY
  2. TOPAMAX [Concomitant]
     Indication: EPILEPSY
     Dosage: 600MG PER DAY

REACTIONS (5)
  - ATRIAL SEPTAL DEFECT [None]
  - CHORDEE [None]
  - DRUG EXPOSURE DURING PREGNANCY [None]
  - LIVE BIRTH [None]
  - VENTRICULAR SEPTAL DEFECT [None]
